FAERS Safety Report 6217323-6 (Version None)
Quarter: 2009Q2

REPORT INFORMATION
  Report Type: 
  Country: None (occurrence: None)
  Receive Date: 20090608
  Receipt Date: 20090604
  Transmission Date: 20091009
  Serious: Yes (Other)
  Sender: FDA-Public Use
  Company Number: US-PFIZER INC-2009193818

PATIENT
  Sex: Female
  Weight: 83.447 kg

DRUGS (4)
  1. GEODON [Suspect]
     Indication: DEPRESSION
     Route: 048
     Dates: start: 20090316, end: 20090322
  2. GEODON [Suspect]
     Indication: OBSESSIVE-COMPULSIVE DISORDER
  3. GEODON [Suspect]
     Indication: ATTENTION DEFICIT/HYPERACTIVITY DISORDER
  4. GEODON [Suspect]
     Indication: BIPOLAR DISORDER

REACTIONS (7)
  - BLOOD PRESSURE INCREASED [None]
  - DYSKINESIA [None]
  - FEELING ABNORMAL [None]
  - FORMICATION [None]
  - INSOMNIA [None]
  - THINKING ABNORMAL [None]
  - TREMOR [None]
